FAERS Safety Report 8976667 (Version 1)
Quarter: 2012Q4

REPORT INFORMATION
  Report Type: Report from Study
  Country: CA (occurrence: CA)
  Receive Date: 20121220
  Receipt Date: 20121220
  Transmission Date: 20130627
  Serious: Yes (Hospitalization, Other)
  Sender: FDA-Public Use
  Company Number: CA-ABBOTT-12P-028-1014029-00

PATIENT
  Sex: Female

DRUGS (5)
  1. HUMIRA [Suspect]
     Indication: RHEUMATOID ARTHRITIS
     Route: 058
     Dates: start: 20120416
  2. METHOTREXATE [Concomitant]
     Indication: PRODUCT USED FOR UNKNOWN INDICATION
     Dosage: 17.5 mg weekly
  3. PREDNISONE [Concomitant]
     Indication: PRODUCT USED FOR UNKNOWN INDICATION
  4. PREDNISONE [Concomitant]
     Dosage: 10 mg daily
  5. TYLENOL [Concomitant]
     Indication: PRODUCT USED FOR UNKNOWN INDICATION

REACTIONS (21)
  - Pneumonia [Unknown]
  - Pulmonary mass [Unknown]
  - Pleural effusion [Unknown]
  - Systemic inflammatory response syndrome [Unknown]
  - Infection [Unknown]
  - Rheumatoid arthritis [Unknown]
  - Asthenia [Unknown]
  - Malaise [Unknown]
  - Thyroid neoplasm [Unknown]
  - Asthenia [Unknown]
  - Fatigue [Unknown]
  - Soft tissue inflammation [Unknown]
  - Aspiration [Unknown]
  - Abscess [Unknown]
  - Empyema [Unknown]
  - Lymphadenopathy [Unknown]
  - Atelectasis [Unknown]
  - Lung consolidation [Unknown]
  - Chronic obstructive pulmonary disease [Unknown]
  - Obesity [Unknown]
  - Lung infection [Unknown]
